FAERS Safety Report 5391329-1 (Version None)
Quarter: 2007Q3

REPORT INFORMATION
  Report Type: 
  Country: None (occurrence: None)
  Receive Date: 20070719
  Receipt Date: 20070711
  Transmission Date: 20080115
  Serious: Yes (Hospitalization)
  Sender: FDA-Public Use
  Company Number: B0479385A

PATIENT
  Age: 47 Year
  Sex: Female

DRUGS (2)
  1. CEFUROXIME AXETIL [Suspect]
     Indication: INFECTION
     Route: 048
  2. CEFTRIAXONE [Suspect]
     Indication: INFECTION
     Route: 030

REACTIONS (8)
  - ASTHENIA [None]
  - LIP SWELLING [None]
  - LUNG INFILTRATION [None]
  - LYMPHADENOPATHY [None]
  - PYREXIA [None]
  - RASH PRURITIC [None]
  - RESPIRATORY DISTRESS [None]
  - SERUM SICKNESS [None]
